FAERS Safety Report 4966091-4 (Version None)
Quarter: 2006Q2

REPORT INFORMATION
  Report Type: 
  Country: None (occurrence: None)
  Receive Date: 20060403
  Receipt Date: 20060322
  Transmission Date: 20061013
  Serious: Yes (Other)
  Sender: FDA-Public Use
  Company Number: 2006040590

PATIENT
  Sex: Female
  Weight: 77.1115 kg

DRUGS (5)
  1. SUDAFED 12 HOUR [Suspect]
     Indication: HYPERSENSITIVITY
     Dosage: 1 - 2 DAILY, ORAL
     Route: 048
  2. METFORMIN HCL [Suspect]
     Indication: POLYCYSTIC OVARIES
     Dosage: 500 MG 3X/DAY
     Dates: start: 19960101
  3. ACETAMINOPHEN [Suspect]
     Indication: HEADACHE
     Dosage: AS NEEDED
  4. GUAIFENESIN (GUAIFENESIN) [Suspect]
     Indication: PULMONARY CONGESTION
     Dosage: AS NEEDED
  5. PRENATAL VITAMINS (ASCORBIC ACID, BIOTIN, MINERALS NOS, NICOTINIC ACID [Concomitant]

REACTIONS (4)
  - CAESAREAN SECTION [None]
  - DRUG EXPOSURE DURING PREGNANCY [None]
  - NEPHROLITHIASIS [None]
  - PRE-ECLAMPSIA [None]
